FAERS Safety Report 19261468 (Version 2)
Quarter: 2021Q2

REPORT INFORMATION
  Report Type: Spontaneous
  Country: ES (occurrence: ES)
  Receive Date: 20210515
  Receipt Date: 20210529
  Transmission Date: 20210717
  Serious: Yes (Hospitalization, Other)
  Sender: FDA-Public Use
  Company Number: ES-AUROBINDO-AUR-APL-2019-080442

PATIENT
  Age: 38 Year
  Sex: Male

DRUGS (2)
  1. ALPRAZOLAM. [Concomitant]
     Active Substance: ALPRAZOLAM
     Indication: PRODUCT USED FOR UNKNOWN INDICATION
     Dosage: 1?2 MG EVERY 8 HOURS
     Route: 048
  2. VENLAFAXINE [Suspect]
     Active Substance: VENLAFAXINE HYDROCHLORIDE
     Indication: DEPRESSION
     Dosage: 75MG?150MG?150MG
     Route: 048

REACTIONS (3)
  - Electrocardiogram QT prolonged [Recovered/Resolved]
  - Sinus tachycardia [Recovering/Resolving]
  - Acute coronary syndrome [Recovering/Resolving]
